FAERS Safety Report 9408035 (Version 1)
Quarter: 2013Q3

REPORT INFORMATION
  Report Type: Spontaneous
  Country: US (occurrence: None)
  Receive Date: 20130717
  Receipt Date: 20130717
  Transmission Date: 20140515
  Serious: Yes (Other)
  Sender: FDA-Public Use
  Company Number: None

PATIENT
  Age: 66 Year
  Sex: Male

DRUGS (2)
  1. SUTENT [Suspect]
     Route: 048
     Dates: start: 20130103, end: 20130716
  2. SUTENT [Suspect]
     Route: 048

REACTIONS (2)
  - Stomatitis [None]
  - Hyperaesthesia [None]
